FAERS Safety Report 9165968 (Version 1)
Quarter: 2013Q1

REPORT INFORMATION
  Report Type: Spontaneous
  Country: US (occurrence: US)
  Receive Date: 20130315
  Receipt Date: 20130315
  Transmission Date: 20140127
  Serious: Yes (Hospitalization)
  Sender: FDA-Public Use
  Company Number: US-GLAXOSMITHKLINE-A1005271A

PATIENT
  Age: 65 Year
  Sex: Male
  Weight: 76.4 kg

DRUGS (6)
  1. VOTRIENT [Suspect]
     Indication: PRODUCT USED FOR UNKNOWN INDICATION
     Dosage: 400MG TWICE PER DAY
     Route: 048
     Dates: end: 201302
  2. LEVOTHYROXIN [Concomitant]
  3. FEXOFENADINE [Concomitant]
  4. TERAZOSIN [Concomitant]
  5. HYDROCODONE + ACETAMINOPHEN [Concomitant]
  6. INSULIN [Concomitant]

REACTIONS (3)
  - Diverticulitis [Unknown]
  - Muscle spasms [Unknown]
  - Muscular weakness [Unknown]
